FAERS Safety Report 8390666-6 (Version None)
Quarter: 2012Q2

REPORT INFORMATION
  Report Type: 
  Country: None (occurrence: None)
  Receive Date: 20120529
  Receipt Date: 20120518
  Transmission Date: 20120825
  Serious: Yes (Hospitalization)
  Sender: FDA-Public Use
  Company Number: IT-BRISTOL-MYERS SQUIBB COMPANY-16603565

PATIENT
  Age: 61 Year
  Sex: Male
  Weight: 72 kg

DRUGS (7)
  1. CISPLATIN [Suspect]
     Indication: NON-SMALL CELL LUNG CANCER
     Dosage: REG 1-DAY 1 EVERY 21 DAYS FOR 3 CYCLES
     Route: 042
     Dates: start: 20120214
  2. NORVASC [Concomitant]
     Indication: HYPERTENSION
     Dates: start: 20060101
  3. NAPRILENE [Concomitant]
     Indication: HYPERTENSION
     Dates: start: 20060101
  4. PEMETREXED DISODIUM [Suspect]
     Indication: NON-SMALL CELL LUNG CANCER
     Dosage: REG 1-DAY 1 EVERY 21 DAYS FOR 3 CYCLES
     Route: 042
     Dates: start: 20120214
  5. FOLIC ACID [Concomitant]
     Indication: PREMEDICATION
     Dates: start: 20120209, end: 20120313
  6. VITAMIN B-12 [Concomitant]
     Indication: PREMEDICATION
     Dates: start: 20120209, end: 20120313
  7. DEXAMETHASONE [Concomitant]
     Indication: PREMEDICATION
     Dates: start: 20120213, end: 20120215

REACTIONS (5)
  - ACUTE ABDOMEN [None]
  - NON-SMALL CELL LUNG CANCER [None]
  - METASTASES TO ADRENALS [None]
  - NEOPLASM PROGRESSION [None]
  - DIVERTICULUM [None]
